FAERS Safety Report 24411632 (Version 1)
Quarter: 2024Q4

REPORT INFORMATION
  Report Type: Spontaneous
  Country: US (occurrence: None)
  Receive Date: 20241007
  Receipt Date: 20241007
  Transmission Date: 20250115
  Serious: Yes (Disabling)
  Sender: Public
  Company Number: None

PATIENT
  Age: 66 Year
  Sex: Female
  Weight: 58.5 kg

DRUGS (5)
  1. MOUNJARO [Suspect]
     Active Substance: TIRZEPATIDE
  2. ADVIL [Concomitant]
     Active Substance: IBUPROFEN
  3. VITAMIN D3 [Concomitant]
     Active Substance: CHOLECALCIFEROL
  4. B12 [Concomitant]
  5. JWH-018 [Concomitant]
     Active Substance: JWH-018

REACTIONS (3)
  - Back pain [None]
  - Arthralgia [None]
  - Muscular weakness [None]

NARRATIVE: CASE EVENT DATE: 20240105
